FAERS Safety Report 9593788 (Version 1)
Quarter: 2013Q4

REPORT INFORMATION
  Report Type: Report from Study
  Country: US (occurrence: US)
  Receive Date: 20131004
  Receipt Date: 20131004
  Transmission Date: 20140711
  Serious: No
  Sender: FDA-Public Use
  Company Number: US-ALEXION-A201301945

PATIENT
  Sex: Male
  Weight: 52.61 kg

DRUGS (2)
  1. SOLIRIS [Suspect]
     Indication: HAEMOLYTIC URAEMIC SYNDROME
     Dosage: 1200 MG, QW X 4 DAY 1-7
     Route: 042
     Dates: start: 20130508
  2. MAGNESIUM SULFATE [Concomitant]
     Indication: SUPPLEMENTATION THERAPY
     Dosage: 2 MG, QW
     Route: 042
     Dates: start: 20130508

REACTIONS (4)
  - Blood creatinine increased [Unknown]
  - Blood potassium abnormal [Unknown]
  - Hypertension [Unknown]
  - Fatigue [Unknown]
